FAERS Safety Report 7949464-7 (Version None)
Quarter: 2011Q4

REPORT INFORMATION
  Report Type: 
  Country: None (occurrence: None)
  Receive Date: 20111130
  Receipt Date: 20111125
  Transmission Date: 20120403
  Serious: Yes (Other)
  Sender: FDA-Public Use
  Company Number: JP-GLAXOSMITHKLINE-B0765582A

PATIENT
  Age: 27 Year
  Sex: Male

DRUGS (5)
  1. LAMICTAL [Suspect]
     Dosage: 50MG PER DAY
     Route: 048
     Dates: start: 20111107, end: 20111109
  2. LAMICTAL [Suspect]
     Indication: BIPOLAR DISORDER
     Dosage: 25MG TWICE PER DAY
     Route: 048
     Dates: start: 20111008, end: 20111021
  3. DEPAKENE [Concomitant]
     Dosage: 600MG PER DAY
     Route: 048
  4. LAMICTAL [Suspect]
     Dosage: 25MG PER DAY
     Route: 048
     Dates: start: 20111022, end: 20111106
  5. LITHIUM CARBONATE [Concomitant]
     Dosage: 600MG PER DAY
     Route: 048

REACTIONS (7)
  - PIGMENTATION DISORDER [None]
  - WHITE BLOOD CELL COUNT DECREASED [None]
  - ALANINE AMINOTRANSFERASE INCREASED [None]
  - VIRAL UPPER RESPIRATORY TRACT INFECTION [None]
  - RASH [None]
  - LIVER DISORDER [None]
  - LYMPHADENOPATHY [None]
